FAERS Safety Report 8122258-8 (Version None)
Quarter: 2012Q1

REPORT INFORMATION
  Report Type: 
  Country: None (occurrence: None)
  Receive Date: 20120208
  Receipt Date: 20120203
  Transmission Date: 20120608
  Serious: Yes (Other)
  Sender: FDA-Public Use
  Company Number: US-ELI_LILLY_AND_COMPANY-US201202001499

PATIENT
  Sex: Male

DRUGS (2)
  1. CISPLATIN [Concomitant]
     Dosage: UNK, UNKNOWN
  2. ALIMTA [Suspect]
     Indication: ENDOCRINE DISORDER
     Dosage: UNK, UNKNOWN

REACTIONS (1)
  - CEREBROVASCULAR ACCIDENT [None]
